FAERS Safety Report 6918614-3 (Version None)
Quarter: 2010Q3

REPORT INFORMATION
  Report Type: 
  Country: None (occurrence: None)
  Receive Date: 20100811
  Receipt Date: 20100804
  Transmission Date: 20110219
  Serious: Yes (Other)
  Sender: FDA-Public Use
  Company Number: ZA-ABBOTT-10P-143-0659498-00

PATIENT
  Sex: Female
  Weight: 72 kg

DRUGS (8)
  1. HUMIRA [Suspect]
     Indication: UVEITIS
     Route: 058
     Dates: start: 20080101, end: 20100719
  2. HUMIRA [Suspect]
     Indication: HLA MARKER STUDY POSITIVE
  3. HUMIRA [Suspect]
     Indication: SPONDYLOARTHROPATHY
  4. HUMIRA [Suspect]
     Indication: LEUKOCYTE ANTIGEN B-27 POSITIVE
  5. METHOTREXATE [Concomitant]
     Indication: CROHN'S DISEASE
     Route: 058
     Dates: start: 20070601
  6. CELECOXIB [Concomitant]
     Indication: PRODUCT USED FOR UNKNOWN INDICATION
     Route: 048
  7. AMILORIDE HCL AND HYDROCHLOROTHIAZIDE [Concomitant]
     Indication: PRODUCT USED FOR UNKNOWN INDICATION
  8. BIPERIDINE [Concomitant]
     Indication: PRODUCT USED FOR UNKNOWN INDICATION

REACTIONS (1)
  - VAGINAL DYSPLASIA [None]
